FAERS Safety Report 14200194 (Version 3)
Quarter: 2017Q4

REPORT INFORMATION
  Report Type: Spontaneous
  Country: GB (occurrence: GB)
  Receive Date: 20171117
  Receipt Date: 20171120
  Transmission Date: 20180321
  Serious: Yes (Disabling, Other)
  Sender: FDA-Public Use
  Company Number: GB-CONCORDIA PHARMACEUTICALS INC.-GSH201603-001263

PATIENT
  Age: 67 Year
  Sex: Male

DRUGS (5)
  1. PRAVASTATIN. [Suspect]
     Active Substance: PRAVASTATIN
     Dosage: AT NIGHT
     Route: 048
     Dates: start: 20151127
  2. PREDNISOLONE. [Concomitant]
     Active Substance: PREDNISOLONE
     Indication: COLITIS ULCERATIVE
     Dosage: MULTIPLE DOSE VIAL,, ONGOING
     Route: 054
     Dates: start: 20151211
  3. LANSOPRAZOLE. [Concomitant]
     Active Substance: LANSOPRAZOLE
     Indication: GASTROINTESTINAL DISORDER
     Dosage: IN THE MORNING, , ONGOING
     Route: 048
     Dates: start: 20150609
  4. VENTOLIN [Concomitant]
     Active Substance: ALBUTEROL SULFATE
     Indication: ASTHMA
     Dosage: EVOHALER, , ONGOING
     Route: 055
     Dates: start: 20150609
  5. PREDNISOLONE. [Suspect]
     Active Substance: PREDNISOLONE
     Dosage: MULTIPLE DOSE VIAL
     Route: 048
     Dates: start: 20160113

REACTIONS (4)
  - Dizziness [Recovered/Resolved]
  - Incoherent [Recovered/Resolved]
  - Asthenia [Recovered/Resolved]
  - Malaise [Recovered/Resolved]
